FAERS Safety Report 21701505 (Version 1)
Quarter: 2022Q4

REPORT INFORMATION
  Report Type: Report from Study
  Country: KR (occurrence: KR)
  Receive Date: 20221208
  Receipt Date: 20221208
  Transmission Date: 20230113
  Serious: Yes (Other)
  Sender: FDA-Public Use
  Company Number: KR-002147023-NVSC2022KR216245

PATIENT

DRUGS (30)
  1. RUXOLITINIB [Suspect]
     Active Substance: RUXOLITINIB
     Indication: Chronic graft versus host disease
     Dosage: 20 MG
     Route: 048
     Dates: start: 20220314, end: 20220707
  2. RUXOLITINIB [Suspect]
     Active Substance: RUXOLITINIB
     Dosage: 10 MG, QD
     Route: 048
  3. FOLIC ACID [Concomitant]
     Active Substance: FOLIC ACID
     Indication: Prophylaxis
     Dosage: 2 MG, QD
     Route: 048
     Dates: start: 20210414, end: 20220703
  4. HARNAL [Concomitant]
     Active Substance: TAMSULOSIN HYDROCHLORIDE
     Indication: Benign prostatic hyperplasia
     Dosage: 0.2 MG, QD
     Route: 048
     Dates: start: 20210809, end: 20220703
  5. ZOYLEX [ACICLOVIR] [Concomitant]
     Indication: Prophylaxis
     Dosage: 400 MG, QD
     Route: 048
     Dates: start: 20211012, end: 20220703
  6. AMLODIPINE MALEATE [Concomitant]
     Active Substance: AMLODIPINE MALEATE
     Indication: Hypertension
     Dosage: 5 MG, BID
     Route: 048
     Dates: start: 20200919, end: 20220515
  7. SULFAMETHOXAZOLE\TRIMETHOPRIM [Concomitant]
     Active Substance: SULFAMETHOXAZOLE\TRIMETHOPRIM
     Indication: Prophylaxis
     Dosage: 2 DOSAGE FORM, BID (FOR WEEKEND)
     Route: 048
     Dates: start: 20210927, end: 20220417
  8. SULFAMETHOXAZOLE\TRIMETHOPRIM [Concomitant]
     Active Substance: SULFAMETHOXAZOLE\TRIMETHOPRIM
     Dosage: 2 DOSAGE FORM, BID
     Route: 048
     Dates: start: 20220404, end: 20220407
  9. TACROBELL [TACROLIMUS] [Concomitant]
     Indication: Chronic graft versus host disease
     Dosage: 0.75 MG, BID
     Route: 048
     Dates: start: 20220118, end: 20220310
  10. TACROBELL [TACROLIMUS] [Concomitant]
     Dosage: 0.5 MG, BID
     Route: 048
     Dates: start: 20220321, end: 20220403
  11. TACROBELL [TACROLIMUS] [Concomitant]
     Dosage: 0.25 MG, BID
     Route: 048
     Dates: start: 20220404, end: 20220417
  12. ALLEGRA [Concomitant]
     Active Substance: FEXOFENADINE HYDROCHLORIDE
     Indication: Chronic graft versus host disease
     Dosage: 180 MG, QD
     Route: 048
     Dates: start: 20211227, end: 20220703
  13. PREDNISOLONE [Concomitant]
     Active Substance: PREDNISOLONE
     Indication: Chronic graft versus host disease
     Dosage: 7.5 MG, QD
     Route: 048
     Dates: start: 20220210, end: 20220320
  14. PREDNISOLONE [Concomitant]
     Active Substance: PREDNISOLONE
     Dosage: 5 MG, QD
     Route: 048
     Dates: start: 20220321, end: 20220410
  15. LEVOFLOXACIN [Concomitant]
     Active Substance: LEVOFLOXACIN
     Indication: Prophylaxis
     Dosage: 500 MG, QD
     Route: 048
     Dates: start: 20220321, end: 20220417
  16. DIABEX [Concomitant]
     Active Substance: METFORMIN HYDROCHLORIDE
     Indication: Diabetes mellitus
     Dosage: 500 MG, TID
     Route: 048
     Dates: start: 20220207, end: 20220703
  17. VILDAGLIPTIN [Concomitant]
     Active Substance: VILDAGLIPTIN
     Indication: Diabetes mellitus
     Dosage: 50 MG, BID
     Route: 048
     Dates: start: 20220324, end: 20220428
  18. TACENOL [Concomitant]
     Indication: Graft versus host disease
     Dosage: 650 MG, TID (ER)
     Route: 048
     Dates: start: 20220404, end: 20220424
  19. TACENOL [Concomitant]
     Dosage: 650 MG, TID
     Route: 048
     Dates: start: 20220502, end: 20220703
  20. IV GLOBULIN SN [Concomitant]
     Indication: Graft versus host disease
     Dosage: 5 G, QD (STRENGTH: 2.5/25 G/ML)
     Route: 042
     Dates: start: 20220404, end: 20220404
  21. IV GLOBULIN SN [Concomitant]
     Dosage: 30 G, QD (STRENGTH: 10/100 G/ML)
     Route: 042
     Dates: start: 20220404, end: 20220404
  22. IV GLOBULIN SN [Concomitant]
     Dosage: 30 G, QD (STRENGTH: 10/100 G/ML)
     Route: 042
     Dates: start: 20220502, end: 20220502
  23. IV GLOBULIN SN [Concomitant]
     Dosage: 30 G, QD (STRENGTH: 10/100 G/ML)
     Route: 042
     Dates: start: 20220502, end: 20220502
  24. CHLORPHENIRAMINE [Concomitant]
     Active Substance: CHLORPHENIRAMINE
     Indication: Premedication
     Dosage: 4 MG, QD (AMP)
     Route: 042
     Dates: start: 20220404, end: 20220404
  25. CHLORPHENIRAMINE [Concomitant]
     Active Substance: CHLORPHENIRAMINE
     Indication: Graft versus host disease
     Dosage: 4 MG, QD
     Route: 042
     Dates: start: 20220502, end: 20220502
  26. PREDISOL [METHYLPREDNISOLONE SODIUM SUCCINATE] [Concomitant]
     Indication: Premedication
     Dosage: 20 MG, QD (VIAL)
     Route: 042
     Dates: start: 20220404, end: 20220404
  27. PREDISOL [METHYLPREDNISOLONE SODIUM SUCCINATE] [Concomitant]
     Indication: Graft versus host disease
     Dosage: 20 MG, QD
     Route: 042
     Dates: start: 20220502, end: 20220502
  28. PREVNAR 13 [Concomitant]
     Active Substance: PNEUMOCOCCAL 13-VALENT CONJUGATE VACCINE
     Indication: Prophylaxis
     Dosage: 1 SYR, QD
     Route: 042
     Dates: start: 20220530, end: 20220530
  29. EUHIB [Concomitant]
     Indication: Prophylaxis
     Dosage: 0.5 ML, QD (VIAL (HIB)
     Route: 042
     Dates: start: 20220627, end: 20220627
  30. TOPISOL MILK LOTION [Concomitant]
     Indication: Graft versus host disease
     Dosage: 1 G, PRN (STRENGTH: 50 G/TUB)
     Route: 065
     Dates: start: 20220613, end: 20220703

REACTIONS (3)
  - Pyrexia [Not Recovered/Not Resolved]
  - Inappropriate schedule of product administration [Unknown]
  - Pneumonia [Recovered/Resolved]

NARRATIVE: CASE EVENT DATE: 20220704
